FAERS Safety Report 14869182 (Version 2)
Quarter: 2025Q2

REPORT INFORMATION
  Report Type: Spontaneous
  Country: ES (occurrence: ES)
  Receive Date: 20180509
  Receipt Date: 20250427
  Transmission Date: 20250717
  Serious: Yes (Other)
  Sender: AUROBINDO
  Company Number: ES-AUROBINDO-AUR-APL-2018-025130

PATIENT
  Age: 54 Year
  Sex: Male

DRUGS (5)
  1. LAMIVUDINE [Interacting]
     Active Substance: LAMIVUDINE
     Indication: HIV infection
     Route: 065
  2. ZIDOVUDINE [Interacting]
     Active Substance: ZIDOVUDINE
     Indication: HIV infection
     Route: 065
  3. FLUTICASONE [Interacting]
     Active Substance: FLUTICASONE
     Indication: Lower respiratory tract infection
     Route: 055
  4. LOPINAVIR\RITONAVIR [Interacting]
     Active Substance: LOPINAVIR\RITONAVIR
     Indication: HIV infection
     Route: 065
  5. SALMETEROL [Concomitant]
     Active Substance: SALMETEROL
     Indication: Lower respiratory tract infection
     Route: 055

REACTIONS (6)
  - Cushingoid [Unknown]
  - Cortisol abnormal [Recovered/Resolved]
  - Lipohypertrophy [Unknown]
  - Central obesity [Unknown]
  - Drug interaction [Unknown]
  - Cushing^s syndrome [Unknown]
